FAERS Safety Report 6208353-9 (Version None)
Quarter: 2009Q2

REPORT INFORMATION
  Report Type: 
  Country: None (occurrence: None)
  Receive Date: 20090529
  Receipt Date: 20090526
  Transmission Date: 20091009
  Serious: Yes (Hospitalization)
  Sender: FDA-Public Use
  Company Number: US-BAYER-200917103NA

PATIENT
  Age: 19 Year
  Sex: Male

DRUGS (4)
  1. NEXAVAR [Suspect]
     Indication: MYELODYSPLASTIC SYNDROME
     Dosage: TOTAL DAILY DOSE: 400 MG  UNIT DOSE: 200 MG
     Route: 048
     Dates: start: 20090320, end: 20090329
  2. NEXAVAR [Suspect]
     Dosage: TOTAL DAILY DOSE: 800 MG  UNIT DOSE: 200 MG
     Route: 048
     Dates: start: 20090330
  3. FLUCONAZOLE [Concomitant]
  4. VFEND [Concomitant]

REACTIONS (4)
  - ABDOMINAL PAIN [None]
  - CAECITIS [None]
  - PYREXIA [None]
  - VOMITING [None]
